FAERS Safety Report 18344484 (Version 1)
Quarter: 2020Q4

REPORT INFORMATION
  Report Type: Report from Study
  Country: CA (occurrence: CA)
  Receive Date: 20201005
  Receipt Date: 20201005
  Transmission Date: 20210114
  Serious: Yes (Other)
  Sender: FDA-Public Use
  Company Number: CA-PFIZER INC-2020379024

PATIENT
  Sex: Female

DRUGS (1)
  1. BEVACIZUMAB. [Suspect]
     Active Substance: BEVACIZUMAB
     Indication: HEREDITARY HAEMORRHAGIC TELANGIECTASIA
     Dosage: UNK
     Route: 042

REACTIONS (6)
  - Off label use [Unknown]
  - Cough [Unknown]
  - Intentional product use issue [Unknown]
  - Hypertension [Unknown]
  - Epistaxis [Unknown]
  - Rash [Unknown]
